FAERS Safety Report 23639101 (Version 4)
Quarter: 2024Q2

REPORT INFORMATION
  Report Type: Spontaneous
  Country: DE (occurrence: DE)
  Receive Date: 20240315
  Receipt Date: 20240522
  Transmission Date: 20240716
  Serious: Yes (Hospitalization, Other)
  Sender: FDA-Public Use
  Company Number: DE-DR. FALK PHARMA GMBH-SA-073-24

PATIENT
  Age: 28 Year
  Sex: Male
  Weight: 75 kg

DRUGS (13)
  1. MESALAMINE [Suspect]
     Active Substance: MESALAMINE
     Indication: Proctitis ulcerative
     Dosage: UNK
     Route: 065
     Dates: start: 2023, end: 20240101
  2. MESALAMINE [Suspect]
     Active Substance: MESALAMINE
     Indication: Proctitis ulcerative
     Dosage: TIME INTERVAL: 0.33333333 DAYS: STRENGTH 500 MILLIGRAM?DOSAGE 1500 MILLIGRAM
     Route: 065
     Dates: start: 20230327, end: 202304
  3. MESALAMINE [Suspect]
     Active Substance: MESALAMINE
     Indication: Proctitis ulcerative
     Dosage: 500 MILLIGRAM, TID
     Route: 065
     Dates: start: 20240501
  4. MESALAMINE [Suspect]
     Active Substance: MESALAMINE
     Indication: Proctitis ulcerative
     Dosage: TIME INTERVAL: 0.33333333 DAYS: STRENGTH 500 MILLIGRAM?DOSE: 1500 MG
     Route: 065
     Dates: start: 202309, end: 20240101
  5. MESALAMINE [Suspect]
     Active Substance: MESALAMINE
     Indication: Proctitis ulcerative
     Dosage: 500 MILLIGRAM, BID
     Route: 065
     Dates: start: 20240304
  6. MESALAMINE [Suspect]
     Active Substance: MESALAMINE
     Indication: Proctitis ulcerative
     Dosage: STRENGTH 500 MILLIGRAM?DOSE: 1000 MILLIGRAM?STOP DATE: MAR 2024
     Route: 065
     Dates: start: 20240304
  7. MESALAMINE [Suspect]
     Active Substance: MESALAMINE
     Indication: Proctitis ulcerative
     Dosage: 500 MILLIGRAM, BID
     Route: 065
     Dates: start: 202305, end: 202308
  8. MESALAMINE [Suspect]
     Active Substance: MESALAMINE
     Indication: Proctitis ulcerative
     Dosage: STRENGTH 500 MILLIGRAM?DISCONTINUED AT 2024
     Route: 065
     Dates: start: 20240307
  9. MESALAMINE [Suspect]
     Active Substance: MESALAMINE
     Indication: Proctitis ulcerative
     Dosage: 500 MILLIGRAM, BID
     Route: 065
     Dates: start: 202305, end: 202308
  10. MESALAMINE [Suspect]
     Active Substance: MESALAMINE
     Indication: Proctitis ulcerative
     Dosage: STRENGTH 500 MILLIGRAM?DOSE: 1000 MILLIGRAM
     Route: 065
     Dates: start: 202305, end: 202308
  11. MESALAMINE [Suspect]
     Active Substance: MESALAMINE
     Indication: Proctitis ulcerative
     Dosage: UNK
     Route: 065
     Dates: start: 20240307
  12. MESALAMINE [Suspect]
     Active Substance: MESALAMINE
     Indication: Proctitis ulcerative
     Dosage: 500 MILLIGRAM, TID?LAST ADMIN DATE-2023
     Route: 065
     Dates: start: 20230327
  13. URSODIOL [Concomitant]
     Active Substance: URSODIOL
     Indication: Prophylaxis
     Dosage: 250 MILLIGRAM, TID
     Route: 065
     Dates: start: 20240410

REACTIONS (6)
  - Bile duct stenosis [Not Recovered/Not Resolved]
  - Pancreatitis acute [Not Recovered/Not Resolved]
  - Underdose [Unknown]
  - Sepsis [Not Recovered/Not Resolved]
  - Cholecystitis [Not Recovered/Not Resolved]
  - Cholecystitis [Not Recovered/Not Resolved]

NARRATIVE: CASE EVENT DATE: 20230501
